FAERS Safety Report 7397292 (Version 3)
Quarter: 2016Q3

REPORT INFORMATION
  Report Type: Spontaneous
  Country: FR (occurrence: FR)
  Receive Date: 20100524
  Receipt Date: 20160720
  Transmission Date: 20161109
  Serious: Yes (Death, Hospitalization)
  Sender: FDA-Public Use
  Company Number: PHHY2010FR32702

PATIENT
  Age: 14 Year
  Sex: Female

DRUGS (11)
  1. LAMISIL [Suspect]
     Active Substance: TERBINAFINE HYDROCHLORIDE
     Indication: ANTIFUNGAL TREATMENT
     Dosage: 250 MG, QD
     Route: 048
     Dates: start: 20100225, end: 20100324
  2. ANCOTIL [Concomitant]
     Active Substance: FLUCYTOSINE
     Indication: PRODUCT USED FOR UNKNOWN INDICATION
     Dosage: UNK
     Route: 065
     Dates: start: 20100324
  3. ZOLOFT [Concomitant]
     Active Substance: SERTRALINE HYDROCHLORIDE
     Indication: PRODUCT USED FOR UNKNOWN INDICATION
     Dosage: UNK
     Route: 065
     Dates: start: 20100316, end: 20100405
  4. LAMISIL [Suspect]
     Active Substance: TERBINAFINE HYDROCHLORIDE
     Dosage: 250 MG, BID
     Route: 065
  5. VANCOMYCIN [Suspect]
     Active Substance: VANCOMYCIN
     Indication: PRODUCT USED FOR UNKNOWN INDICATION
     Dosage: 450 MG, BID
     Route: 042
     Dates: start: 20100219, end: 20100402
  6. CASPOFUNGIN [Concomitant]
     Active Substance: CASPOFUNGIN
     Indication: INTERVERTEBRAL DISCITIS
     Route: 065
  7. FLUCYTOSINE. [Suspect]
     Active Substance: FLUCYTOSINE
     Indication: PRODUCT USED FOR UNKNOWN INDICATION
     Dosage: 6 G, QD
     Route: 065
  8. AMPHOTERICINE B, LIPOSOME [Concomitant]
     Active Substance: AMPHOTERICIN B
     Indication: INTERVERTEBRAL DISCITIS
     Route: 065
  9. TIENAM [Suspect]
     Active Substance: CILASTATIN SODIUM\IMIPENEM
     Indication: PRODUCT USED FOR UNKNOWN INDICATION
     Dosage: 450 MG, BID
     Route: 042
     Dates: start: 20100219, end: 20100402
  10. ZOVIRAX [Suspect]
     Active Substance: ACYCLOVIR
     Indication: PRODUCT USED FOR UNKNOWN INDICATION
     Dosage: 150 MG, TID
     Route: 042
     Dates: start: 20100220, end: 20100414
  11. BACTRIM [Concomitant]
     Active Substance: SULFAMETHOXAZOLE\TRIMETHOPRIM
     Indication: PRODUCT USED FOR UNKNOWN INDICATION
     Dosage: UNK
     Route: 065
     Dates: start: 20091230, end: 20100414

REACTIONS (9)
  - Skin exfoliation [Recovering/Resolving]
  - Inflammation [Recovered/Resolved]
  - Septic shock [Fatal]
  - Infection [Unknown]
  - Pruritus [Recovered/Resolved]
  - General physical health deterioration [Unknown]
  - Hyperthermia [Unknown]
  - Rash erythematous [Recovering/Resolving]
  - Skin lesion [Recovered/Resolved]

NARRATIVE: CASE EVENT DATE: 20100305
